FAERS Safety Report 8019767-9 (Version None)
Quarter: 2012Q1

REPORT INFORMATION
  Report Type: 
  Country: None (occurrence: None)
  Receive Date: 20120103
  Receipt Date: 20111227
  Transmission Date: 20120608
  Serious: Yes (Other)
  Sender: FDA-Public Use
  Company Number: IT-GLAXOSMITHKLINE-B0772567A

PATIENT
  Sex: Male

DRUGS (9)
  1. PHENFORMIN HCL SRC [Suspect]
     Indication: TYPE 2 DIABETES MELLITUS
     Dosage: 3TAB PER DAY
     Route: 048
     Dates: start: 20090101, end: 20110925
  2. ENALAPRIL MALEATE [Concomitant]
     Indication: HYPERTENSION
     Dosage: 5MG PER DAY
  3. COUMADIN [Concomitant]
     Indication: ATRIAL FIBRILLATION
     Dosage: 5MG PER DAY
  4. LASIX [Concomitant]
     Indication: HYPERTENSION
     Dosage: 25MG PER DAY
  5. MINITRAN [Concomitant]
     Indication: ANGINA PECTORIS
     Dosage: 5MG PER DAY
  6. METOPROLOL [Concomitant]
     Indication: HYPERTENSION
     Dosage: 100MG PER DAY
  7. LANOXIN [Suspect]
     Indication: CARDIAC FAILURE
     Route: 048
     Dates: start: 20110825, end: 20110925
  8. ALLOPURINOL [Concomitant]
     Indication: HYPERURICAEMIA
     Dosage: 100MG PER DAY
  9. ALDACTONE [Concomitant]
     Indication: HYPERTENSION
     Dosage: 25MG PER DAY

REACTIONS (2)
  - HYPOGLYCAEMIA [None]
  - TOXICITY TO VARIOUS AGENTS [None]
